FAERS Safety Report 8325846-9 (Version None)
Quarter: 2012Q2

REPORT INFORMATION
  Report Type: 
  Country: None (occurrence: None)
  Receive Date: 20120501
  Receipt Date: 20120419
  Transmission Date: 20120825
  Serious: No
  Sender: FDA-Public Use
  Company Number: US-BIOGENIDEC-2012BI013767

PATIENT
  Sex: Female

DRUGS (3)
  1. AVONEX [Concomitant]
     Indication: MULTIPLE SCLEROSIS
     Route: 030
     Dates: start: 20030818
  2. TYSABRI [Suspect]
     Indication: MULTIPLE SCLEROSIS
     Route: 042
     Dates: start: 20091216, end: 20111111
  3. AVONEX [Concomitant]
     Route: 030
     Dates: start: 20091201

REACTIONS (6)
  - DISTURBANCE IN ATTENTION [None]
  - ASTHENIA [None]
  - MOBILITY DECREASED [None]
  - DIZZINESS [None]
  - HEADACHE [None]
  - TINNITUS [None]
